FAERS Safety Report 22338801 (Version 1)
Quarter: 2023Q2

REPORT INFORMATION
  Report Type: Report from Study
  Country: FR (occurrence: FR)
  Receive Date: 20230518
  Receipt Date: 20230518
  Transmission Date: 20230722
  Serious: Yes (Other)
  Sender: FDA-Public Use
  Company Number: FR-JNJFOC-20200142326

PATIENT
  Age: 14 Year
  Sex: Female
  Weight: 54 kg

DRUGS (8)
  1. PLACEBO [Suspect]
     Active Substance: UNSPECIFIED INGREDIENT
     Indication: Major depression
     Route: 048
     Dates: start: 20190711, end: 20190805
  2. PLACEBO [Suspect]
     Active Substance: UNSPECIFIED INGREDIENT
     Indication: Suicidal ideation
  3. ESKETAMINE [Suspect]
     Active Substance: ESKETAMINE
     Indication: Suicidal ideation
     Dates: start: 20190711, end: 20190805
  4. ESKETAMINE [Suspect]
     Active Substance: ESKETAMINE
     Indication: Major depression
  5. SERTRALINE [Concomitant]
     Active Substance: SERTRALINE HYDROCHLORIDE
     Indication: Major depression
     Route: 048
     Dates: start: 20190831
  6. SERTRALINE [Concomitant]
     Active Substance: SERTRALINE HYDROCHLORIDE
     Route: 048
     Dates: start: 201911, end: 201912
  7. MELATONIN [Concomitant]
     Active Substance: MELATONIN
     Indication: Sleep disorder therapy
     Route: 048
     Dates: start: 20191025
  8. ACETAMINOPHEN [Concomitant]
     Active Substance: ACETAMINOPHEN
     Indication: Abdominal pain
     Route: 048
     Dates: start: 20190708

REACTIONS (1)
  - Suicide attempt [Recovered/Resolved]

NARRATIVE: CASE EVENT DATE: 20191213
